FAERS Safety Report 5546507-5 (Version None)
Quarter: 2007Q4

REPORT INFORMATION
  Report Type: 
  Country: None (occurrence: None)
  Receive Date: 20071211
  Receipt Date: 20070209
  Transmission Date: 20080405
  Serious: No
  Sender: FDA-Public Use
  Company Number: US-AMGEN-KDL210890

PATIENT
  Sex: Male

DRUGS (1)
  1. ENBREL [Suspect]
     Dates: start: 20030901

REACTIONS (2)
  - BACTERIA URINE IDENTIFIED [None]
  - ESCHERICHIA INFECTION [None]
